FAERS Safety Report 13047069 (Version 2)
Quarter: 2019Q1

REPORT INFORMATION
  Report Type: Spontaneous
  Country: US (occurrence: US)
  Receive Date: 20161220
  Receipt Date: 20190306
  Transmission Date: 20190417
  Serious: No
  Sender: FDA-Public Use
  Company Number: US-BAUSCH-BL-2016-023259

PATIENT
  Age: 68 Year
  Sex: Female

DRUGS (1)
  1. JUBLIA [Suspect]
     Active Substance: EFINACONAZOLE
     Indication: ONYCHOMYCOSIS
     Dosage: 1 APPLICATION
     Route: 061
     Dates: start: 201608

REACTIONS (2)
  - Nail discolouration [Not Recovered/Not Resolved]
  - Product leakage [Unknown]

NARRATIVE: CASE EVENT DATE: 2016
